FAERS Safety Report 15703125 (Version 1)
Quarter: 2018Q4

REPORT INFORMATION
  Report Type: Spontaneous
  Country: CN (occurrence: CN)
  Receive Date: 20181210
  Receipt Date: 20181210
  Transmission Date: 20190205
  Serious: Yes (Other)
  Sender: FDA-Public Use
  Company Number: CN-BAXTER-2018BAX029554

PATIENT
  Age: 53 Year
  Sex: Female
  Weight: 65 kg

DRUGS (2)
  1. 20% MANNITOL INJECTION [Suspect]
     Active Substance: MANNITOL
     Dosage: DOSE REDUCED
     Route: 041
     Dates: start: 201809
  2. 20% MANNITOL INJECTION [Suspect]
     Active Substance: MANNITOL
     Indication: INTRACRANIAL PRESSURE INCREASED
     Route: 041
     Dates: start: 20180913, end: 20180917

REACTIONS (1)
  - Acute kidney injury [Recovering/Resolving]

NARRATIVE: CASE EVENT DATE: 20180917
